FAERS Safety Report 10047460 (Version 1)
Quarter: 2014Q1

REPORT INFORMATION
  Report Type: Spontaneous
  Country: US (occurrence: None)
  Receive Date: 20140328
  Receipt Date: 20140328
  Transmission Date: 20141002
  Serious: No
  Sender: FDA-Public Use
  Company Number: None

PATIENT
  Age: 54 Year
  Sex: Female

DRUGS (8)
  1. SOVALDI 400MG GILEAD SCIENCES [Suspect]
     Indication: HEPATITIS C
     Route: 048
     Dates: start: 20140321
  2. RIBAVIRIN [Suspect]
     Indication: HEPATITIS C
     Dosage: 600MG QAM AND 400MG QPM
     Route: 048
     Dates: start: 20140321
  3. VALACYCLOVIR [Concomitant]
  4. ESTRING [Concomitant]
  5. AZITHROMYCIN [Concomitant]
  6. RANITIDINE [Concomitant]
  7. IBANDRONATE [Concomitant]
  8. ALLEGRA [Concomitant]

REACTIONS (3)
  - Nausea [None]
  - Dyspepsia [None]
  - Palpitations [None]
